FAERS Safety Report 9150287 (Version 1)
Quarter: 2013Q1

REPORT INFORMATION
  Report Type: Spontaneous
  Country: US (occurrence: US)
  Receive Date: 20130308
  Receipt Date: 20130308
  Transmission Date: 20140127
  Serious: Yes (Hospitalization, Other)
  Sender: FDA-Public Use
  Company Number: US-009507513-1303USA001853

PATIENT
  Sex: Male

DRUGS (17)
  1. SINGULAIR [Suspect]
     Dosage: UNK
  2. ALBUTEROL [Concomitant]
     Indication: ANTIPLATELET THERAPY
     Dosage: INHALATION
     Route: 055
  3. METOPROLOL [Concomitant]
     Indication: ASTHMA
     Dosage: UNK
  4. ASPIRIN [Concomitant]
     Indication: PRODUCT USED FOR UNKNOWN INDICATION
     Dosage: 325 MG, UNK
  5. ASPIRIN [Concomitant]
     Indication: DYSLIPIDAEMIA
     Dosage: 81 MG, UNK
  6. SORIATANE [Concomitant]
     Indication: PSORIASIS
     Dosage: 25 MG, UNK
     Route: 048
  7. ADVAIR [Concomitant]
     Dosage: INHALATION
     Route: 055
  8. FENOFIBRATE [Concomitant]
     Dosage: 145 MG, UNK
  9. PLAVIX [Concomitant]
     Dosage: UNK
  10. METOPROLOL [Concomitant]
     Dosage: 125 MG, UNK
  11. ZETIA [Concomitant]
     Dosage: UNK
  12. ADVAIR [Concomitant]
     Dosage: INHALATION
     Route: 055
  13. ACITRETIN [Concomitant]
     Dosage: 25 MG, QD
  14. ASPIRIN [Concomitant]
     Dosage: 325 MBQ, UNK
  15. LIPITOR [Concomitant]
     Dosage: 10 MG, UNK
  16. PLAVIX [Concomitant]
     Dosage: 79 MG, QD
  17. LIPITOR [Concomitant]
     Dosage: UNK

REACTIONS (6)
  - Myocardial infarction [Unknown]
  - Weight decreased [Unknown]
  - Ventricular hypokinesia [Unknown]
  - Hypotension [Unknown]
  - Epistaxis [Unknown]
  - Coronary artery stenosis [Unknown]
